FAERS Safety Report 23405810 (Version 7)
Quarter: 2024Q2

REPORT INFORMATION
  Report Type: Report from Study
  Country: CA (occurrence: None)
  Receive Date: 20240116
  Receipt Date: 20240625
  Transmission Date: 20240716
  Serious: Yes (Hospitalization, Other)
  Sender: FDA-Public Use
  Company Number: 2024A012156

PATIENT
  Age: 7 Year
  Sex: Female
  Weight: 22.4 kg

DRUGS (4)
  1. KOSELUGO [Suspect]
     Active Substance: SELUMETINIB
     Indication: Neurofibromatosis
     Route: 048
     Dates: start: 20230609
  2. KOSELUGO [Suspect]
     Active Substance: SELUMETINIB
     Indication: Neurofibromatosis
     Dosage: 10 MG/DL BID
     Route: 048
     Dates: start: 20230609
  3. KOSELUGO [Suspect]
     Active Substance: SELUMETINIB
     Indication: Neurofibromatosis
     Route: 048
     Dates: start: 20240119
  4. HYDROCORTISONE [Concomitant]
     Active Substance: HYDROCORTISONE\HYDROCORTISONE ACETATE
     Indication: Eczema

REACTIONS (11)
  - Sepsis [Recovered/Resolved]
  - Beta haemolytic streptococcal infection [Recovering/Resolving]
  - Illness [Unknown]
  - Rhinalgia [Unknown]
  - Impaired healing [Unknown]
  - Infection [Unknown]
  - Rash [Unknown]
  - Pain [Unknown]
  - Decreased activity [Unknown]
  - Asthenia [Unknown]
  - Fear [Unknown]

NARRATIVE: CASE EVENT DATE: 20231201
